FAERS Safety Report 10563349 (Version 2)
Quarter: 2014Q4

REPORT INFORMATION
  Report Type: Spontaneous
  Country: CA (occurrence: CA)
  Receive Date: 20141104
  Receipt Date: 20141104
  Transmission Date: 20150529
  Serious: Yes (Other)
  Sender: FDA-Public Use
  Company Number: CA-GSKJP-KK201316722GSK1550188002

PATIENT
  Age: 55 Year
  Sex: Female
  Weight: 61 kg

DRUGS (13)
  1. TYLENOL [Concomitant]
     Active Substance: ACETAMINOPHEN
     Indication: PREMEDICATION
     Route: 048
  2. WELLBUTRIN [Concomitant]
     Active Substance: BUPROPION HYDROCHLORIDE
  3. ACTONEL [Concomitant]
     Active Substance: RISEDRONATE SODIUM
  4. VITAMIN D [Concomitant]
     Active Substance: CHOLECALCIFEROL
  5. CALCIUM [Concomitant]
     Active Substance: CALCIUM
  6. TRAMADOL [Concomitant]
     Active Substance: TRAMADOL
  7. MTX [Concomitant]
     Active Substance: METHOTREXATE SODIUM
  8. BENLYSTA [Suspect]
     Active Substance: BELIMUMAB
     Indication: SYSTEMIC LUPUS ERYTHEMATOSUS
     Dosage: EVERY 2 WEEKS, THEN MONTHLY
     Route: 042
     Dates: start: 20121127, end: 20140617
  9. NAPROXEN. [Concomitant]
     Active Substance: NAPROXEN
  10. PREDNISONE. [Concomitant]
     Active Substance: PREDNISONE
  11. BENADRYL [Concomitant]
     Active Substance: DIPHENHYDRAMINE HYDROCHLORIDE
     Indication: PREMEDICATION
     Route: 048
  12. ADVIL [Concomitant]
     Active Substance: IBUPROFEN
  13. ESTROGEN + PROGESTERONE [Concomitant]

REACTIONS (15)
  - Pain in jaw [Recovered/Resolved]
  - Nail operation [Recovering/Resolving]
  - Drug ineffective [Unknown]
  - Fall [Unknown]
  - Bone density decreased [Not Recovered/Not Resolved]
  - Rash [Unknown]
  - Skin discolouration [Unknown]
  - Cough [Recovered/Resolved]
  - Paronychia [Recovering/Resolving]
  - Ill-defined disorder [Not Recovered/Not Resolved]
  - Oropharyngeal pain [Recovered/Resolved]
  - Depression [Recovering/Resolving]
  - Spinal fracture [Recovering/Resolving]
  - Nasopharyngitis [Recovered/Resolved]
  - Postmenopausal haemorrhage [Recovered/Resolved]

NARRATIVE: CASE EVENT DATE: 20121211
